FAERS Safety Report 7041196-5 (Version None)
Quarter: 2010Q4

REPORT INFORMATION
  Report Type: 
  Country: None (occurrence: None)
  Receive Date: 20101013
  Receipt Date: 20101007
  Transmission Date: 20110411
  Serious: Yes (Hospitalization)
  Sender: FDA-Public Use
  Company Number: UA-BAYER-201041822GPV

PATIENT
  Age: 37 Year
  Sex: Female
  Weight: 72 kg

DRUGS (3)
  1. AVELOX [Suspect]
     Indication: BRONCHITIS
     Dosage: UNIT DOSE: 400 MG
     Route: 048
     Dates: start: 20101003, end: 20101005
  2. SPIRIVA [Concomitant]
     Indication: BRONCHITIS
     Dates: start: 20100801
  3. CALCIUM CHLORIDE [Concomitant]

REACTIONS (6)
  - ABDOMINAL PAIN [None]
  - ACCOMMODATION DISORDER [None]
  - HEADACHE [None]
  - MUSCLE SPASMS [None]
  - NAUSEA [None]
  - VISUAL IMPAIRMENT [None]
